FAERS Safety Report 13234371 (Version 1)
Quarter: 2017Q1

REPORT INFORMATION
  Report Type: Report from Study
  Country: None (occurrence: US)
  Receive Date: 20170215
  Receipt Date: 20170215
  Transmission Date: 20170428
  Serious: Yes (Hospitalization)
  Sender: FDA-Public Use
  Company Number: US-ABBVIE-17K-163-1865924-00

PATIENT
  Sex: Male

DRUGS (1)
  1. HUMIRA [Suspect]
     Active Substance: ADALIMUMAB
     Indication: COLITIS ULCERATIVE
     Route: 058
     Dates: start: 2016, end: 201611

REACTIONS (9)
  - Abdominal pain [Recovering/Resolving]
  - Haematochezia [Unknown]
  - Nausea [Recovered/Resolved]
  - Colitis ulcerative [Unknown]
  - Urinary retention [Recovered/Resolved]
  - Drug ineffective [Unknown]
  - Post procedural infection [Recovered/Resolved]
  - Diarrhoea [Unknown]
  - Dysuria [Recovered/Resolved]

NARRATIVE: CASE EVENT DATE: 2016
